FAERS Safety Report 4856124-8 (Version None)
Quarter: 2005Q4

REPORT INFORMATION
  Report Type: 
  Country: None (occurrence: None)
  Receive Date: 20051216
  Receipt Date: 20050928
  Transmission Date: 20060501
  Serious: Yes (Hospitalization, Disabling)
  Sender: FDA-Public Use
  Company Number: CA-MERCK-0509CAN00198

PATIENT
  Age: 59 Year
  Sex: Female
  Weight: 61 kg

DRUGS (8)
  1. VIOXX [Suspect]
     Indication: RHEUMATOID ARTHRITIS
     Route: 048
     Dates: start: 20000619
  2. VIOXX [Suspect]
     Route: 048
     Dates: start: 20000706
  3. VIOXX [Suspect]
     Route: 048
     Dates: end: 20040615
  4. METHOTREXATE [Concomitant]
     Indication: ARTHRITIS
     Route: 065
  5. PREDNISONE [Concomitant]
     Indication: ARTHRITIS
     Route: 065
  6. HYDROXYCHLOROQUINE SULFATE [Concomitant]
     Route: 065
  7. FOLIC ACID [Concomitant]
     Indication: ARTHRITIS
     Route: 065
  8. CALCIUM CARBONATE AND ETIDRONATE SODIUM [Concomitant]
     Route: 065
     Dates: start: 20000101

REACTIONS (3)
  - ACUTE MYOCARDIAL INFARCTION [None]
  - ARTHROPATHY [None]
  - SWELLING [None]
